FAERS Safety Report 7332440-5 (Version None)
Quarter: 2011Q1

REPORT INFORMATION
  Report Type: 
  Country: None (occurrence: None)
  Receive Date: 20110304
  Receipt Date: 20110228
  Transmission Date: 20110831
  Serious: Yes (Hospitalization, Other)
  Sender: FDA-Public Use
  Company Number: US-PFIZER INC-2007002264

PATIENT
  Sex: Male

DRUGS (1)
  1. NEURONTIN [Suspect]
     Dosage: 100 MG, 300 MG AND 600 MG, UNK
     Dates: start: 19981026, end: 20020429

REACTIONS (12)
  - WEIGHT INCREASED [None]
  - DEPRESSION [None]
  - COMPULSIONS [None]
  - DELUSION [None]
  - IMPULSIVE BEHAVIOUR [None]
  - SUICIDAL IDEATION [None]
  - FATIGUE [None]
  - ANXIETY [None]
  - AMNESIA [None]
  - SUICIDE ATTEMPT [None]
  - COMA [None]
  - DIZZINESS [None]
